FAERS Safety Report 7399393-5 (Version None)
Quarter: 2011Q2

REPORT INFORMATION
  Report Type: 
  Country: None (occurrence: None)
  Receive Date: 20110407
  Receipt Date: 20110324
  Transmission Date: 20111010
  Serious: Yes (Hospitalization, Other)
  Sender: FDA-Public Use
  Company Number: PHHY2011FR21108

PATIENT
  Sex: Female
  Weight: 46 kg

DRUGS (7)
  1. TEGRETOL [Suspect]
     Dosage: 200 MG WAS AT HALF A TABLET IN THE EVENING
     Dates: start: 19920313
  2. TEGRETOL [Suspect]
     Dosage: HALF A TABLET BID (MORNING AND EVENING) DURING 5 DAYS
  3. CORTICOSTEROIDS [Concomitant]
     Dosage: UNK UKN, UNK
  4. TEGRETOL [Suspect]
     Dosage: 200 MG WAS AT HALF A TABLET IN THE MORNING
     Dates: start: 19920313
  5. TEGRETOL [Suspect]
     Dosage: ONE AND HALF A TABLET IN THE MORNING AND IN THE EVENING DURING 20 DAYS
  6. TEGRETOL [Suspect]
     Indication: EPILEPSY
     Dosage: AT HALF A TABLET IN THE EVENING DURING 4-5 DAYS
     Dates: start: 19920304, end: 19920330
  7. TEGRETOL [Suspect]
     Dosage: ONE TAB IN THE MORNING AND ONE AND HALF A TABLET IN THE EVENING DURING

REACTIONS (24)
  - SKIN EXFOLIATION [None]
  - BLISTER [None]
  - STAPHYLOCOCCAL INFECTION [None]
  - TOXIC EPIDERMAL NECROLYSIS [None]
  - SKIN BURNING SENSATION [None]
  - STOMATITIS [None]
  - NIKOLSKY'S SIGN [None]
  - NAUSEA [None]
  - SKIN LESION [None]
  - ERYTHEMA MULTIFORME [None]
  - CONJUNCTIVITIS [None]
  - TRACHEAL STENOSIS [None]
  - BLOOD AMYLASE INCREASED [None]
  - EYELID OEDEMA [None]
  - VOMITING [None]
  - ASTHMA [None]
  - RESTLESSNESS [None]
  - SKIN IRRITATION [None]
  - RASH [None]
  - BODY TEMPERATURE INCREASED [None]
  - FATIGUE [None]
  - KERATITIS [None]
  - PANCREATIC DISORDER [None]
  - HYPOCHROMIC ANAEMIA [None]
